FAERS Safety Report 7796168-X (Version None)
Quarter: 2011Q4

REPORT INFORMATION
  Report Type: 
  Country: None (occurrence: None)
  Receive Date: 20111004
  Receipt Date: 20110930
  Transmission Date: 20120403
  Serious: Yes (Life-Threatening, Hospitalization)
  Sender: FDA-Public Use
  Company Number: DE-ABBOTT-11P-062-0860409-00

PATIENT
  Sex: Male
  Weight: 63 kg

DRUGS (3)
  1. KALETRA [Suspect]
     Dosage: 400MG/100MG DAILY
     Dates: start: 20110810
  2. KALETRA [Suspect]
     Indication: HIV INFECTION
     Dosage: 200MG/50MG BID
     Dates: start: 20090422, end: 20110809
  3. TRUVADA [Concomitant]
     Indication: PRODUCT USED FOR UNKNOWN INDICATION
     Dosage: 200MG/245MG DAILY
     Dates: start: 20090422

REACTIONS (2)
  - HEPATIC FAILURE [None]
  - HEPATITIS C [None]
